FAERS Safety Report 5722543-0 (Version None)
Quarter: 2008Q2

REPORT INFORMATION
  Report Type: 
  Country: None (occurrence: None)
  Receive Date: 20080429
  Receipt Date: 20070702
  Transmission Date: 20081010
  Serious: No
  Sender: FDA-Public Use
  Company Number: US-ASTRAZENECA-2007UW15563

PATIENT
  Age: 64 Year
  Sex: Female
  Weight: 59 kg

DRUGS (11)
  1. NEXIUM [Suspect]
     Indication: GASTROOESOPHAGEAL REFLUX DISEASE
     Route: 048
     Dates: start: 20040101
  2. SYNTHROID [Interacting]
     Dates: start: 20070401
  3. PREMARIN [Concomitant]
  4. VITAMIN B COMPLEX CAP [Concomitant]
  5. VITAMIN A [Concomitant]
  6. ASCORBIC ACID [Concomitant]
  7. MAGNESIUM [Concomitant]
  8. CALCIUM PLUS D [Concomitant]
  9. FISH OIL [Concomitant]
  10. FLAX OIL [Concomitant]
  11. SELENIUM [Concomitant]

REACTIONS (6)
  - ASTHENIA [None]
  - DIZZINESS [None]
  - DRUG INTERACTION [None]
  - HEADACHE [None]
  - INFLUENZA LIKE ILLNESS [None]
  - NAUSEA [None]
